FAERS Safety Report 4334488-1 (Version None)
Quarter: 2004Q2

REPORT INFORMATION
  Report Type: 
  Country: None (occurrence: None)
  Receive Date: 20040407
  Receipt Date: 20040405
  Transmission Date: 20050107
  Serious: Yes (Other)
  Sender: FDA-Public Use
  Company Number: US-GLAXOSMITHKLINE-A0505935A

PATIENT
  Age: 25 Year
  Sex: Female

DRUGS (7)
  1. LITHIUM CARBONATE [Suspect]
     Indication: BIPOLAR I DISORDER
     Route: 048
  2. MOTION SICKNESS MEDICATION [Suspect]
     Indication: PROPHYLAXIS AGAINST MOTION SICKNESS
     Route: 023
  3. EFFEXOR [Concomitant]
  4. XANAX [Concomitant]
  5. ALBUTEROL [Concomitant]
  6. NEBULIZER [Concomitant]
  7. FLOVENT [Concomitant]

REACTIONS (7)
  - EUPHORIC MOOD [None]
  - HALLUCINATION [None]
  - INFERTILITY [None]
  - MEMORY IMPAIRMENT [None]
  - MENTAL IMPAIRMENT [None]
  - RASH [None]
  - SKIN DISORDER [None]
